FAERS Safety Report 5341715-0 (Version None)
Quarter: 2007Q2

REPORT INFORMATION
  Report Type: 
  Country: None (occurrence: None)
  Receive Date: 20070530
  Receipt Date: 20070515
  Transmission Date: 20071010
  Serious: Yes (Hospitalization)
  Sender: FDA-Public Use
  Company Number: 2007RR-07630

PATIENT
  Sex: Male
  Weight: 4.3 kg

DRUGS (3)
  1. SERTRALINE [Suspect]
     Indication: DEPRESSION
     Dosage: 50 MG, QD, TRANSPLACENTAL
     Route: 064
     Dates: start: 20070101
  2. PENICILLIN G [Concomitant]
  3. GENTAMICIN [Concomitant]

REACTIONS (11)
  - BRADYCARDIA NEONATAL [None]
  - CAESAREAN SECTION [None]
  - CONVULSION NEONATAL [None]
  - DRUG EXPOSURE DURING PREGNANCY [None]
  - DYSKINESIA NEONATAL [None]
  - GRUNTING [None]
  - HYPERVIGILANCE [None]
  - NEONATAL DISORDER [None]
  - NEONATAL TACHYPNOEA [None]
  - OXYGEN SATURATION DECREASED [None]
  - TREMOR NEONATAL [None]
